FAERS Safety Report 13725514 (Version 1)
Quarter: 2017Q3

REPORT INFORMATION
  Report Type: Spontaneous
  Country: US (occurrence: US)
  Receive Date: 20170706
  Receipt Date: 20170706
  Transmission Date: 20171127
  Serious: Yes (Other)
  Sender: FDA-Public Use
  Company Number: None

PATIENT
  Age: 60 Year
  Sex: Female
  Weight: 101 kg

DRUGS (3)
  1. EMEND [Suspect]
     Active Substance: APREPITANT
     Indication: PROPHYLAXIS OF NAUSEA AND VOMITING
     Dosage: ?          OTHER DOSE:MG;OTHER FREQUENCY:ONCE;?
     Route: 042
     Dates: start: 20170705, end: 20170705
  2. PALONOSETRON [Concomitant]
     Active Substance: PALONOSETRON
  3. DEXAMETHASONE. [Concomitant]
     Active Substance: DEXAMETHASONE

REACTIONS (6)
  - Arthralgia [None]
  - Chest discomfort [None]
  - Throat tightness [None]
  - Infusion related reaction [None]
  - Pain in extremity [None]
  - Musculoskeletal pain [None]

NARRATIVE: CASE EVENT DATE: 20170705
